FAERS Safety Report 9685101 (Version 3)
Quarter: 2014Q1

REPORT INFORMATION
  Report Type: Spontaneous
  Country: IT (occurrence: IT)
  Receive Date: 20131113
  Receipt Date: 20140217
  Transmission Date: 20141002
  Serious: Yes (Other)
  Sender: FDA-Public Use
  Company Number: IT-JNJFOC-20131103311

PATIENT
  Age: 33 Year
  Sex: Female
  Weight: 60 kg

DRUGS (3)
  1. REMICADE [Suspect]
     Indication: PSORIATIC ARTHROPATHY
     Dosage: STRENGTH: 100MG
     Route: 042
     Dates: start: 20130219, end: 20131002
  2. MEDROL [Concomitant]
     Dosage: STRENGTH:4MG
     Route: 048
     Dates: start: 20080909, end: 20131002
  3. YAZ [Concomitant]
     Dosage: STRENGTH:0.02MG+3MG
     Route: 048
     Dates: start: 20110907, end: 20131002

REACTIONS (7)
  - Suffocation feeling [Recovered/Resolved]
  - Dyspnoea [Recovered/Resolved]
  - Hypertensive crisis [Recovered/Resolved]
  - Infusion related reaction [Recovered/Resolved]
  - Tachycardia [Recovered/Resolved]
  - Chest discomfort [Recovered/Resolved]
  - Palpitations [Recovered/Resolved]
